FAERS Safety Report 12212096 (Version 2)
Quarter: 2016Q2

REPORT INFORMATION
  Report Type: Spontaneous
  Country: FR (occurrence: FR)
  Receive Date: 20160325
  Receipt Date: 20160415
  Transmission Date: 20160815
  Serious: Yes (Hospitalization, Other)
  Sender: FDA-Public Use
  Company Number: FR-PFIZER INC-2016165886

PATIENT
  Age: 88 Year
  Sex: Female

DRUGS (5)
  1. KARDEGIC [Suspect]
     Active Substance: ASPIRIN LYSINE
     Dosage: 75 MG, 1X/DAY
     Route: 048
     Dates: end: 20160114
  2. RISPERDAL [Concomitant]
     Active Substance: RISPERIDONE
     Dosage: 0.5 MG, 1X/DAY
     Route: 048
     Dates: end: 20160114
  3. ZOLOFT [Suspect]
     Active Substance: SERTRALINE HYDROCHLORIDE
     Dosage: 25 MG, 1X/DAY
     Route: 048
  4. ALPRAZOLAM. [Concomitant]
     Active Substance: ALPRAZOLAM
     Dosage: 0.5 MG, 4X/DAY
     Route: 048
     Dates: start: 20151229
  5. LEVOTHYROX [Concomitant]
     Active Substance: LEVOTHYROXINE
     Dosage: UNK
     Route: 048
     Dates: end: 20151229

REACTIONS (9)
  - Subdural haematoma [Recovered/Resolved]
  - Head injury [Unknown]
  - Epistaxis [Unknown]
  - Normochromic normocytic anaemia [Unknown]
  - Fall [Unknown]
  - Hypotension [Unknown]
  - Facial bones fracture [Unknown]
  - Extradural haematoma [Recovered/Resolved]
  - Pleural effusion [Unknown]

NARRATIVE: CASE EVENT DATE: 20160114
